FAERS Safety Report 5014854-1 (Version None)
Quarter: 2006Q2

REPORT INFORMATION
  Report Type: 
  Country: None (occurrence: None)
  Receive Date: 20060419
  Receipt Date: 20051103
  Transmission Date: 20061013
  Serious: Yes (Hospitalization)
  Sender: FDA-Public Use
  Company Number: 2005-04369

PATIENT
  Age: 62 Year
  Sex: Female

DRUGS (1)
  1. FERRLECIT [Suspect]
     Dosage: ^125 MG IVP X 8 Q TX^, INTRAVENOUS
     Route: 042

REACTIONS (4)
  - BLOOD PRESSURE SYSTOLIC INCREASED [None]
  - CHEST DISCOMFORT [None]
  - HEADACHE [None]
  - RESTLESSNESS [None]
